FAERS Safety Report 9379019 (Version 1)
Quarter: 2013Q3

REPORT INFORMATION
  Report Type: Spontaneous
  Country: US (occurrence: US)
  Receive Date: 20130702
  Receipt Date: 20130702
  Transmission Date: 20140515
  Serious: Yes (Other)
  Sender: FDA-Public Use
  Company Number: US-BRISTOL-MYERS SQUIBB COMPANY-19040328

PATIENT
  Age: 68 Year
  Sex: Female
  Weight: 69.84 kg

DRUGS (7)
  1. COUMADIN [Suspect]
     Dosage: 5MG ALSO TKN
  2. AMPYRA [Interacting]
     Indication: GAIT DISTURBANCE
     Route: 048
     Dates: start: 2011
  3. METFORMIN [Concomitant]
     Dates: start: 2001
  4. METOPROLOL [Concomitant]
     Dates: start: 2001
  5. GLIPIZIDE [Concomitant]
     Dates: start: 2012
  6. PREVACID [Concomitant]
     Dates: start: 2006
  7. CALCIUM [Concomitant]

REACTIONS (6)
  - Lower limb fracture [Recovered/Resolved]
  - Fall [Unknown]
  - Dysarthria [Unknown]
  - Fatigue [Unknown]
  - Drug interaction [Unknown]
  - Dizziness [Unknown]
